FAERS Safety Report 8191124-4 (Version None)
Quarter: 2012Q1

REPORT INFORMATION
  Report Type: 
  Country: None (occurrence: None)
  Receive Date: 20120307
  Receipt Date: 20120217
  Transmission Date: 20120608
  Serious: Yes (Hospitalization)
  Sender: FDA-Public Use
  Company Number: JP-GLAXOSMITHKLINE-B0782811A

PATIENT
  Sex: Female

DRUGS (6)
  1. GLIMICRON [Concomitant]
     Indication: DIABETES MELLITUS
     Dosage: 120MG PER DAY
     Route: 048
  2. RISEDRONATE SODIUM [Concomitant]
     Indication: OSTEOPOROSIS
     Dosage: 2.5MG PER DAY
     Route: 048
  3. LIPITOR [Concomitant]
     Indication: HYPERLIPIDAEMIA
     Dosage: 10MG PER DAY
     Route: 048
  4. VALTREX [Suspect]
     Indication: HERPES ZOSTER
     Dosage: 1500MG PER DAY
     Route: 048
     Dates: start: 20120210, end: 20120216
  5. ACYCLOVIR [Concomitant]
     Indication: HERPES ZOSTER
     Dosage: 250MG PER DAY
     Route: 042
     Dates: start: 20120210, end: 20120214
  6. BASEN [Concomitant]
     Indication: DIABETES MELLITUS
     Dosage: .4MG PER DAY
     Route: 048

REACTIONS (7)
  - ELECTROENCEPHALOGRAM ABNORMAL [None]
  - NERVOUS SYSTEM DISORDER [None]
  - BLOOD ALKALINE PHOSPHATASE INCREASED [None]
  - COGNITIVE DISORDER [None]
  - DIZZINESS [None]
  - GAMMA-GLUTAMYLTRANSFERASE INCREASED [None]
  - ENCEPHALOPATHY [None]
